FAERS Safety Report 6460226-2 (Version None)
Quarter: 2009Q4

REPORT INFORMATION
  Report Type: 
  Country: None (occurrence: None)
  Receive Date: 20091130
  Receipt Date: 20091120
  Transmission Date: 20100525
  Serious: Yes (Hospitalization, Other)
  Sender: FDA-Public Use
  Company Number: GB-RANBAXY-2006RR-04968

PATIENT
  Age: 57 Year
  Sex: Male
  Weight: 75 kg

DRUGS (9)
  1. PARACETAMOL [Suspect]
  2. HUMIRA [Suspect]
     Indication: ANKYLOSING SPONDYLITIS
     Dosage: 40 MG, FORTNIGHT
     Route: 058
     Dates: start: 20050310, end: 20050715
  3. MELOXICAM [Concomitant]
     Route: 065
  4. AKOXIA [Concomitant]
     Indication: ANKYLOSING SPONDYLITIS
     Dosage: 90 MG, QD
     Route: 048
  5. ACCOXIN [Concomitant]
     Indication: ANKYLOSING SPONDYLITIS
     Dosage: 90 MG, QD
     Route: 048
  6. ETORICOXIB [Concomitant]
     Dosage: UNK
     Dates: start: 20051013
  7. FLUOXETINE [Concomitant]
     Dosage: UNK
     Dates: start: 20050901
  8. IBUPROFEN [Concomitant]
     Indication: PAIN
     Dosage: 1200 MG, TID
  9. PARACETAMOL [Concomitant]
     Indication: PAIN
     Dosage: UNK
     Route: 065

REACTIONS (20)
  - ANKYLOSING SPONDYLITIS [None]
  - ARTHRALGIA [None]
  - BONE PAIN [None]
  - DEPRESSED MOOD [None]
  - DEPRESSION [None]
  - EMOTIONAL DISTRESS [None]
  - FEELING HOT [None]
  - GENERAL PHYSICAL HEALTH DETERIORATION [None]
  - INTENTIONAL OVERDOSE [None]
  - JOINT RANGE OF MOTION DECREASED [None]
  - MALAISE [None]
  - MENTAL DISORDER [None]
  - MYALGIA [None]
  - NIGHT SWEATS [None]
  - PAIN [None]
  - PELVIC PAIN [None]
  - SPINAL DISORDER [None]
  - SUICIDAL IDEATION [None]
  - SUICIDE ATTEMPT [None]
  - WITHDRAWAL SYNDROME [None]
